FAERS Safety Report 15882906 (Version 3)
Quarter: 2019Q1

REPORT INFORMATION
  Report Type: Spontaneous
  Country: US (occurrence: US)
  Receive Date: 20190129
  Receipt Date: 20190308
  Transmission Date: 20190417
  Serious: Yes (Other)
  Sender: FDA-Public Use
  Company Number: US-AUROBINDO-AUR-APL-2019-003086

PATIENT
  Age: 65 Year
  Sex: Female
  Weight: 81 kg

DRUGS (4)
  1. SUMATRIPTAN TABLET [Suspect]
     Active Substance: SUMATRIPTAN
     Indication: MIGRAINE
     Dosage: UNK
     Route: 048
  2. SUMATRIPTAN TABLET [Suspect]
     Active Substance: SUMATRIPTAN
     Indication: HEADACHE
     Dosage: 100 MILLIGRAM
     Route: 048
     Dates: start: 20190114
  3. LEVOTHYROXINE SODIUM. [Concomitant]
     Active Substance: LEVOTHYROXINE SODIUM
     Indication: PRODUCT USED FOR UNKNOWN INDICATION
     Dosage: 75 MILLIGRAM
     Route: 048
  4. TOPIRAMATE. [Concomitant]
     Active Substance: TOPIRAMATE
     Indication: PRODUCT USED FOR UNKNOWN INDICATION
     Dosage: UNK
     Route: 048

REACTIONS (2)
  - Diverticulitis [Recovered/Resolved]
  - Product physical issue [Unknown]

NARRATIVE: CASE EVENT DATE: 201806
